FAERS Safety Report 7200914-3 (Version None)
Quarter: 2010Q4

REPORT INFORMATION
  Report Type: 
  Country: None (occurrence: None)
  Receive Date: 20101228
  Receipt Date: 20101227
  Transmission Date: 20110411
  Serious: Yes (Death)
  Sender: FDA-Public Use
  Company Number: CN-PFIZER INC-2010177180

PATIENT
  Age: 4 Year
  Sex: Male

DRUGS (3)
  1. CEFOPERAZONE SODIUM [Suspect]
     Indication: COUGH
     Dosage: 0.5 G, SINGLE
     Route: 030
  2. CEFOPERAZONE SODIUM [Suspect]
     Indication: RHINORRHOEA
  3. DEXAMETHASONE [Concomitant]
     Dosage: 2 MG, SINGLE
     Route: 030

REACTIONS (4)
  - ANAPHYLACTIC SHOCK [None]
  - BRONCHITIS [None]
  - PULMONARY HAEMORRHAGE [None]
  - PULMONARY OEDEMA [None]
